FAERS Safety Report 7405317-4 (Version None)
Quarter: 2011Q2

REPORT INFORMATION
  Report Type: 
  Country: None (occurrence: None)
  Receive Date: 20110411
  Receipt Date: 20110329
  Transmission Date: 20111010
  Serious: Yes (Hospitalization)
  Sender: FDA-Public Use
  Company Number: PHHY2011AU04227

PATIENT
  Sex: Female

DRUGS (1)
  1. CLOZARIL [Suspect]
     Dosage: 300 MG, QD
     Dates: start: 19970317

REACTIONS (4)
  - MENTAL DISORDER [None]
  - HEADACHE [None]
  - FALL [None]
  - ARTHRALGIA [None]
